FAERS Safety Report 17056991 (Version 1)
Quarter: 2019Q4

REPORT INFORMATION
  Report Type: Spontaneous
  Country: EG (occurrence: EG)
  Receive Date: 20191121
  Receipt Date: 20191121
  Transmission Date: 20200122
  Serious: Yes (Hospitalization)
  Sender: FDA-Public Use
  Company Number: EG-HIKMA PHARMACEUTICALS USA INC.-EG-H14001-19-05822

PATIENT
  Age: 33 Year
  Sex: Female

DRUGS (1)
  1. ETOPUL [Suspect]
     Active Substance: ETOPOSIDE
     Indication: BRAIN NEOPLASM
     Route: 065
     Dates: start: 20190827

REACTIONS (2)
  - Coma [Recovered/Resolved]
  - Pyrexia [Unknown]

NARRATIVE: CASE EVENT DATE: 20190910
